FAERS Safety Report 9265573 (Version 1)
Quarter: 2013Q2

REPORT INFORMATION
  Report Type: Other
  Country: GB (occurrence: GB)
  Receive Date: 20130501
  Receipt Date: 20130501
  Transmission Date: 20140414
  Serious: Yes (Other)
  Sender: FDA-Public Use
  Company Number: GB-WATSON-2013-07208

PATIENT
  Age: 59 Year
  Sex: Male

DRUGS (3)
  1. NAPROXEN (UNKNOWN) [Suspect]
     Indication: EPICONDYLITIS
     Dosage: 500 MG, UNKNOWN
     Route: 048
     Dates: start: 20130322, end: 20130330
  2. SIMVASTATIN [Concomitant]
     Indication: PRODUCT USED FOR UNKNOWN INDICATION
  3. LISINOPRIL [Concomitant]
     Indication: PRODUCT USED FOR UNKNOWN INDICATION

REACTIONS (1)
  - Amnesia [Recovered/Resolved]
